FAERS Safety Report 7016560-0 (Version None)
Quarter: 2010Q3

REPORT INFORMATION
  Report Type: 
  Country: None (occurrence: None)
  Receive Date: 20100927
  Receipt Date: 20100921
  Transmission Date: 20110219
  Serious: Yes (Hospitalization)
  Sender: FDA-Public Use
  Company Number: A0882351A

PATIENT
  Sex: Female

DRUGS (3)
  1. LAMICTAL [Suspect]
     Indication: BIPOLAR DISORDER
     Route: 048
  2. PLAVIX [Concomitant]
  3. ARICEPT [Concomitant]

REACTIONS (3)
  - HAEMORRHAGE [None]
  - HAEMORRHAGIC STROKE [None]
  - VAGINAL CANCER [None]
